FAERS Safety Report 8494606-0 (Version None)
Quarter: 2012Q3

REPORT INFORMATION
  Report Type: 
  Country: None (occurrence: None)
  Receive Date: 20120709
  Receipt Date: 20120628
  Transmission Date: 20120928
  Serious: Yes (Other)
  Sender: FDA-Public Use
  Company Number: BR-SANOFI-AVENTIS-2012SA046492

PATIENT
  Sex: Male
  Weight: 71 kg

DRUGS (3)
  1. DEVICE NOS [Concomitant]
     Indication: DEVICE THERAPY
     Dates: start: 20000101
  2. DEVICE NOS [Concomitant]
  3. APIDRA [Suspect]
     Dosage: FORM:VIALSTRENGTH: 10 ML
     Route: 058
     Dates: start: 20070101

REACTIONS (4)
  - INJECTION SITE INFLAMMATION [None]
  - INJECTION SITE NODULE [None]
  - LIPODYSTROPHY ACQUIRED [None]
  - INJECTION SITE INFECTION [None]
